FAERS Safety Report 4804703-6 (Version None)
Quarter: 2005Q4

REPORT INFORMATION
  Report Type: 
  Country: None (occurrence: None)
  Receive Date: 20051014
  Receipt Date: 20051003
  Transmission Date: 20060501
  Serious: Yes (Death, Other)
  Sender: FDA-Public Use
  Company Number: 2005124960

PATIENT
  Age: 44 Year
  Sex: Female

DRUGS (4)
  1. XANAX [Suspect]
     Indication: ANXIETY
     Dosage: (0.5 MG, 2 TO 3 DAILY), ORAL
     Route: 048
     Dates: start: 19980206, end: 20050527
  2. PREDNISONE [Suspect]
     Indication: ILL-DEFINED DISORDER
  3. AMITRIPTYLINE HCL [Suspect]
     Indication: ILL-DEFINED DISORDER
     Dosage: 25 MG (25 MG, 1 IN 1 D),
  4. DOXEPIN HCL [Suspect]
     Indication: PRURITUS
     Dosage: (DAILY),

REACTIONS (2)
  - OVERDOSE [None]
  - RASH PRURITIC [None]
